FAERS Safety Report 10867971 (Version 1)
Quarter: 2015Q1

REPORT INFORMATION
  Report Type: Spontaneous
  Country: US (occurrence: US)
  Receive Date: 20150225
  Receipt Date: 20150225
  Transmission Date: 20150721
  Serious: Yes (Hospitalization)
  Sender: FDA-Public Use
  Company Number: US-UNITED THERAPEUTICS-UNT-2015-001942

PATIENT
  Sex: Male

DRUGS (1)
  1. REMODULIN [Suspect]
     Active Substance: TREPROSTINIL
     Indication: PRODUCT USED FOR UNKNOWN INDICATION
     Dosage: 0.095 ?G/KG, CONTINUING
     Route: 058
     Dates: start: 20131218

REACTIONS (2)
  - Localised infection [Unknown]
  - Ulcer [Unknown]

NARRATIVE: CASE EVENT DATE: 20150216
